FAERS Safety Report 7610319-9 (Version None)
Quarter: 2011Q3

REPORT INFORMATION
  Report Type: 
  Country: None (occurrence: None)
  Receive Date: 20110706
  Receipt Date: 20110705
  Transmission Date: 20111222
  Serious: Yes (Hospitalization)
  Sender: FDA-Public Use
  Company Number: GRT 2011-12846

PATIENT
  Age: 59 Year
  Sex: Female

DRUGS (8)
  1. ZOLPITOP (ZOLPIDEM) [Concomitant]
  2. TRAZOLAN (TRAZODONE HYDROCHLORIDE) [Concomitant]
  3. AMITRIPTYLINE HCL [Concomitant]
  4. LIDODERM [Suspect]
     Indication: NEURALGIA
     Dosage: 1 PATCH A DAY;
     Dates: start: 20110512, end: 20110624
  5. SPIRIVA (TIOTROPIUM BROMODE) [Concomitant]
  6. SIMBICORT (BUDESONIDE, FORMOTEROL FUMARATE) [Concomitant]
  7. AMLODIPINE [Concomitant]
  8. XANAX [Concomitant]

REACTIONS (2)
  - MALIGNANT PLEURAL EFFUSION [None]
  - CHEST PAIN [None]
